FAERS Safety Report 4654253-5 (Version None)
Quarter: 2005Q2

REPORT INFORMATION
  Report Type: 
  Country: None (occurrence: None)
  Receive Date: 20050504
  Receipt Date: 20050421
  Transmission Date: 20051028
  Serious: Yes (Other)
  Sender: FDA-Public Use
  Company Number: 2005064256

PATIENT
  Sex: Female
  Weight: 86.1834 kg

DRUGS (9)
  1. BEXTRA [Suspect]
     Indication: SYSTEMIC LUPUS ERYTHEMATOSUS
     Dosage: 40 MG (20 MG, 2 IN 1 D), ORAL
     Route: 048
     Dates: start: 20030101
  2. UROGESIC BLUE (HYOSCYAMINE SULFATE, METHENAMINE, METHYLTHIONINIUM CHLO [Concomitant]
  3. OMEPRAZOLE [Concomitant]
  4. RABEPRAZOLE SODIUM [Concomitant]
  5. PHENAZOPYRIDINE HYDROCHLORIDE (PHENAZOPYRIDINE HYDROCHLORIDE) [Concomitant]
  6. MEPERGAN [Concomitant]
  7. MELOXICAM [Concomitant]
  8. NITROFURANTOIN [Concomitant]
  9. HYOSCYAMINE SULFATE AND PHENOBARBITAL [Concomitant]

REACTIONS (7)
  - ARTHRALGIA [None]
  - BLOOD PRESSURE INCREASED [None]
  - BONE FRAGMENTATION [None]
  - CHRONIC OBSTRUCTIVE PULMONARY DISEASE [None]
  - DRUG EFFECT DECREASED [None]
  - RASH ERYTHEMATOUS [None]
  - RASH PRURITIC [None]
